FAERS Safety Report 8354870-5 (Version None)
Quarter: 2012Q2

REPORT INFORMATION
  Report Type: 
  Country: None (occurrence: None)
  Receive Date: 20120511
  Receipt Date: 20120502
  Transmission Date: 20120825
  Serious: Yes (Hospitalization)
  Sender: FDA-Public Use
  Company Number: US-ASTRAZENECA-2012SE24051

PATIENT
  Age: 71 Year
  Sex: Female

DRUGS (1)
  1. NEXIUM [Suspect]
     Route: 048

REACTIONS (10)
  - WEIGHT DECREASED [None]
  - WHEEZING [None]
  - DIARRHOEA [None]
  - INFLUENZA [None]
  - COUGH [None]
  - PYREXIA [None]
  - BACTERIAL INFECTION [None]
  - APHAGIA [None]
  - SWELLING [None]
  - NASOPHARYNGITIS [None]
